FAERS Safety Report 16944305 (Version 2)
Quarter: 2019Q4

REPORT INFORMATION
  Report Type: Spontaneous
  Country: US (occurrence: US)
  Receive Date: 20191022
  Receipt Date: 20191101
  Transmission Date: 20200122
  Serious: No
  Sender: FDA-Public Use
  Company Number: US-TEVA-2019-US-1123878

PATIENT
  Sex: Female

DRUGS (1)
  1. QVAR REDIHALER [Suspect]
     Active Substance: BECLOMETHASONE DIPROPIONATE
     Indication: ASTHMA
     Dosage: QVAR REDIHALER, TWO PUFFS TWICE DAILY
     Route: 065
     Dates: start: 201807

REACTIONS (4)
  - Asthma [Unknown]
  - Drug ineffective [Unknown]
  - Malaise [Unknown]
  - Product substitution issue [Unknown]

NARRATIVE: CASE EVENT DATE: 201807
